FAERS Safety Report 13114495 (Version 5)
Quarter: 2017Q1

REPORT INFORMATION
  Report Type: Report from Study
  Country: CZ (occurrence: CZ)
  Receive Date: 20170113
  Receipt Date: 20170303
  Transmission Date: 20170428
  Serious: Yes (Death)
  Sender: FDA-Public Use
  Company Number: CZ-PFIZER INC-2017009034

PATIENT
  Age: 66 Year
  Sex: Male
  Weight: 99 kg

DRUGS (11)
  1. BEVACIZUMAB [Suspect]
     Active Substance: BEVACIZUMAB
     Indication: NON-SMALL CELL LUNG CANCER
     Dosage: 1485 MG/M2, UNK
     Route: 042
     Dates: start: 20161222, end: 20161222
  2. ASPIRIN. [Concomitant]
     Active Substance: ASPIRIN
     Indication: CHRONIC RESPIRATORY DISEASE
     Dosage: UNK
     Route: 048
     Dates: start: 2016
  3. ROFLUMILAST [Concomitant]
     Active Substance: ROFLUMILAST
     Indication: CHRONIC OBSTRUCTIVE PULMONARY DISEASE
     Dosage: UNK
     Route: 048
     Dates: start: 2016
  4. PANTOPRAZOLUM [Concomitant]
     Indication: GASTRIC DISORDER
     Dosage: UNK
     Route: 048
     Dates: start: 2016
  5. ALLOPURINOLUM [Concomitant]
     Indication: BLOOD URIC ACID INCREASED
     Dosage: UNK
     Route: 048
     Dates: start: 2016
  6. CARBOPLATIN. [Suspect]
     Active Substance: CARBOPLATIN
     Indication: NON-SMALL CELL LUNG CANCER
     Dosage: 700 MG/M2, UNK
     Route: 042
     Dates: start: 20161222, end: 20161222
  7. CORYOL /00984501/ [Concomitant]
     Active Substance: CARVEDILOL
     Indication: CHRONIC RESPIRATORY DISEASE
     Dosage: UNK
     Route: 048
     Dates: start: 2016
  8. PACLITAXEL. [Suspect]
     Active Substance: PACLITAXEL
     Indication: NON-SMALL CELL LUNG CANCER
     Dosage: 442 MG/M2, UNK
     Route: 042
     Dates: start: 20161222, end: 20161222
  9. SPIRONOLACTONUM [Concomitant]
     Indication: CHRONIC RESPIRATORY DISEASE
     Dosage: UNK
     Route: 048
     Dates: start: 2016
  10. FUROSEMID [Concomitant]
     Active Substance: FUROSEMIDE
     Indication: CHRONIC RESPIRATORY DISEASE
     Dosage: UNK
     Route: 048
     Dates: start: 2016
  11. SPIOLTO RESPIMAT [Concomitant]
     Active Substance: OLODATEROL HYDROCHLORIDE\TIOTROPIUM BROMIDE MONOHYDRATE
     Indication: CHRONIC OBSTRUCTIVE PULMONARY DISEASE
     Dosage: UNK
     Dates: start: 2016

REACTIONS (1)
  - Death [Fatal]

NARRATIVE: CASE EVENT DATE: 20170108
